FAERS Safety Report 11308836 (Version 2)
Quarter: 2016Q4

REPORT INFORMATION
  Report Type: Spontaneous
  Country: US (occurrence: US)
  Receive Date: 20150724
  Receipt Date: 20161108
  Transmission Date: 20170206
  Serious: Yes (Other)
  Sender: FDA-Public Use
  Company Number: US-ELI_LILLY_AND_COMPANY-US201507004775

PATIENT
  Sex: Female

DRUGS (8)
  1. CYMBALTA [Suspect]
     Active Substance: DULOXETINE HYDROCHLORIDE
     Dosage: 20 MG, QOD
     Route: 065
     Dates: start: 20150210
  2. CYMBALTA [Suspect]
     Active Substance: DULOXETINE HYDROCHLORIDE
     Indication: PAIN
     Dosage: UNK, UNKNOWN
     Route: 065
  3. CYMBALTA [Suspect]
     Active Substance: DULOXETINE HYDROCHLORIDE
     Indication: DEPRESSION
     Dosage: 60 MG, UNKNOWN
     Route: 065
  4. WELLBUTRIN [Concomitant]
     Active Substance: BUPROPION HYDROCHLORIDE
     Dosage: 100 MG, UNKNOWN
     Route: 065
  5. CYMBALTA [Suspect]
     Active Substance: DULOXETINE HYDROCHLORIDE
     Dosage: 30 MG, QD
     Route: 065
     Dates: start: 20150113
  6. CYMBALTA [Suspect]
     Active Substance: DULOXETINE HYDROCHLORIDE
     Dosage: 40 MG, QD
     Route: 065
     Dates: start: 20141230
  7. CHANTIX [Concomitant]
     Active Substance: VARENICLINE TARTRATE
     Dosage: UNK, UNKNOWN
     Route: 065
  8. CYMBALTA [Suspect]
     Active Substance: DULOXETINE HYDROCHLORIDE
     Dosage: 20 MG, QD
     Route: 065
     Dates: start: 20150127

REACTIONS (24)
  - Vertigo [Unknown]
  - Fatigue [Unknown]
  - Disturbance in attention [Unknown]
  - Pruritus [Unknown]
  - Headache [Unknown]
  - Chills [Unknown]
  - Nightmare [Unknown]
  - Paraesthesia [Unknown]
  - Crying [Unknown]
  - Confusional state [Unknown]
  - Dizziness [Unknown]
  - Vision blurred [Unknown]
  - Lethargy [Unknown]
  - Drug withdrawal syndrome [Unknown]
  - Mood swings [Unknown]
  - Suicidal ideation [Unknown]
  - Hyperhidrosis [Unknown]
  - Anger [Unknown]
  - Amnesia [Unknown]
  - Sense of a foreshortened future [Unknown]
  - Eye disorder [Unknown]
  - Nausea [Unknown]
  - Diarrhoea [Unknown]
  - Insomnia [Unknown]
